FAERS Safety Report 7082894-7 (Version None)
Quarter: 2010Q4

REPORT INFORMATION
  Report Type: 
  Country: None (occurrence: None)
  Receive Date: 20101104
  Receipt Date: 20091102
  Transmission Date: 20110411
  Serious: No
  Sender: FDA-Public Use
  Company Number: US-PFIZER INC-2009292796

PATIENT
  Sex: Male

DRUGS (1)
  1. VIBRAMYCIN [Suspect]
     Indication: PROSTATITIS

REACTIONS (3)
  - ABDOMINAL DISCOMFORT [None]
  - SUNBURN [None]
  - WEIGHT DECREASED [None]
